FAERS Safety Report 8621205 (Version 3)
Quarter: 2012Q4

REPORT INFORMATION
  Report Type: 
  Country: US (occurrence: US)
  Receive Date: 20120619
  Receipt Date: 20121009
  Transmission Date: 20130627
  Serious: No
  Sender: FDA-Public Use
  Company Number: US-PFIZER INC-2012145108

PATIENT
  Age: 67 Year
  Sex: Female
  Weight: 45 kg

DRUGS (3)
  1. LYRICA [Suspect]
     Indication: FACIAL NEURALGIA
     Dosage: 75 mg in the morning and 50 mg in the evening
     Route: 048
     Dates: start: 201203
  2. LYRICA [Suspect]
     Indication: NEUROPATHY PERIPHERAL
     Dosage: 75 mg, 2x/day
     Route: 048
     Dates: start: 201206
  3. ZALEPLON [Concomitant]
     Indication: SLEEP DISORDER
     Dosage: 5 mg, as needed, at bedtime

REACTIONS (5)
  - Poor quality drug administered [Unknown]
  - Somnolence [Unknown]
  - Fatigue [Unknown]
  - Poor quality sleep [Not Recovered/Not Resolved]
  - Insomnia [Not Recovered/Not Resolved]
